FAERS Safety Report 25527771 (Version 3)
Quarter: 2025Q3

REPORT INFORMATION
  Report Type: Spontaneous
  Country: EU (occurrence: EU)
  Receive Date: 20250708
  Receipt Date: 20250717
  Transmission Date: 20251020
  Serious: Yes (Hospitalization, Other)
  Sender: ORGANON
  Company Number: EU-002147023-NVSC2025ES099556

PATIENT
  Age: 57 Year
  Sex: Male

DRUGS (16)
  1. MONTELUKAST SODIUM [Suspect]
     Active Substance: MONTELUKAST SODIUM
     Indication: Product used for unknown indication
     Dosage: 10 MG, QD
     Route: 065
  2. ATORVASTATIN\EZETIMIBE [Suspect]
     Active Substance: ATORVASTATIN\EZETIMIBE
     Indication: Product used for unknown indication
     Route: 065
  3. CERTICAN [Suspect]
     Active Substance: EVEROLIMUS
     Indication: Lung transplant
     Dosage: 0.5 MG, Q12H
     Route: 048
     Dates: start: 202404, end: 20250603
  4. AZITHROMYCIN [Suspect]
     Active Substance: AZITHROMYCIN
     Indication: Product used for unknown indication
     Route: 065
  5. OMEPRAZOLE [Suspect]
     Active Substance: OMEPRAZOLE
     Indication: Product used for unknown indication
     Route: 065
  6. BISOPROLOL [Suspect]
     Active Substance: BISOPROLOL
     Indication: Product used for unknown indication
     Dosage: 2.5 MG (WITH BREAKFAST)
     Route: 065
  7. ACETAMINOPHEN [Suspect]
     Active Substance: ACETAMINOPHEN
     Indication: Product used for unknown indication
     Dosage: 1 G (PER 8H, IF NEEDED)
     Route: 065
  8. PROGRAF [Concomitant]
     Active Substance: TACROLIMUS
     Indication: Product used for unknown indication
     Dosage: 1 MG, BID (2 MG)
     Route: 065
  9. PREDNISONE [Concomitant]
     Active Substance: PREDNISONE
     Indication: Product used for unknown indication
     Dosage: 5 MG, Q24H (PER 24H)
     Route: 065
  10. AMBISOME [Concomitant]
     Active Substance: AMPHOTERICIN B
     Indication: Product used for unknown indication
     Dosage: 50 MG, QW
  11. AMBISOME [Concomitant]
     Active Substance: AMPHOTERICIN B
  12. CALCIUM CARBONATE\CHOLECALCIFEROL [Concomitant]
     Active Substance: CALCIUM CARBONATE\CHOLECALCIFEROL
     Indication: Product used for unknown indication
     Dosage: UNK, Q12H
     Route: 065
  13. OMACOR [Concomitant]
     Active Substance: OMEGA-3-ACID ETHYL ESTERS
     Indication: Product used for unknown indication
     Dosage: 2 DOSAGE FORM, Q12H (2 CAPSULES)
     Route: 065
  14. MAGNOGENE [MAGNESIUM BROMIDE;MAGNESIUM CHLORIDE;MAGNESIUM FLUORIDE;MAG [Concomitant]
     Indication: Product used for unknown indication
     Dosage: 1 DOSAGE FORM, Q12H
     Route: 065
  15. DIAZEPAM [Concomitant]
     Active Substance: DIAZEPAM
     Indication: Product used for unknown indication
     Route: 065
  16. METAMIZOLE SODIUM [Concomitant]
     Active Substance: METAMIZOLE SODIUM
     Indication: Product used for unknown indication
     Dosage: 575 MG (PER 8H, IF  NEEDED)
     Route: 065

REACTIONS (9)
  - Mouth ulceration [Recovered/Resolved]
  - Odynophagia [Recovered/Resolved]
  - Pain [Recovered/Resolved]
  - Chronic inflammatory response syndrome [Recovered/Resolved]
  - Pyrexia [Recovered/Resolved]
  - Superinfection [Unknown]
  - Chronic kidney disease [Unknown]
  - Mononeuropathy [Not Recovered/Not Resolved]
  - Off label use [Unknown]

NARRATIVE: CASE EVENT DATE: 20250501
